FAERS Safety Report 11783143 (Version 1)
Quarter: 2015Q4

REPORT INFORMATION
  Report Type: Spontaneous
  Country: US (occurrence: US)
  Receive Date: 20151127
  Receipt Date: 20151127
  Transmission Date: 20160305
  Serious: No
  Sender: FDA-Public Use
  Company Number: US-009507513-1511USA003172

PATIENT
  Age: 17 Year
  Sex: Female
  Weight: 82.3 kg

DRUGS (1)
  1. NEXPLANON [Suspect]
     Active Substance: ETONOGESTREL
     Dosage: 1 DF, UNK
     Route: 059
     Dates: start: 20140225, end: 20151028

REACTIONS (3)
  - Device breakage [Unknown]
  - Discomfort [Unknown]
  - No adverse event [Unknown]

NARRATIVE: CASE EVENT DATE: 20151028
